FAERS Safety Report 11103309 (Version 1)
Quarter: 2015Q2

REPORT INFORMATION
  Report Type: Other
  Country: GB (occurrence: GB)
  Receive Date: 20150511
  Receipt Date: 20150511
  Transmission Date: 20150821
  Serious: Yes (Hospitalization)
  Sender: FDA-Public Use
  Company Number: GB-MYLANLABS-2015M1014288

PATIENT

DRUGS (7)
  1. SIMVASTATIN. [Concomitant]
     Active Substance: SIMVASTATIN
     Dosage: 40 MG, QD (AT NIGHT)
  2. TOLTERODINE [Suspect]
     Active Substance: TOLTERODINE
     Indication: URINARY INCONTINENCE
     Dosage: 4 MG, QD (EVERY MORNING)
  3. QUININE BISULPHATE [Concomitant]
     Dosage: 300 MG, QD (AT NIGHT)
  4. ALENDRONIC ACID [Concomitant]
     Active Substance: ALENDRONIC ACID
     Dosage: 70 MG, QW
  5. COCODAMOL [Suspect]
     Active Substance: ACETAMINOPHEN\CODEINE PHOSPHATE
     Dosage: UNK (1-2 FOUR TIMES A DAY)
  6. CALFOVIT D3 [Concomitant]
     Dosage: 1 DF, QD (EVERY MORNING, SACHETS)
  7. FELODIPINE. [Concomitant]
     Active Substance: FELODIPINE
     Dosage: 5 MG, QD (EVERY MORNING)

REACTIONS (6)
  - Speech disorder [Unknown]
  - Urinary retention [Unknown]
  - Hallucination, visual [Unknown]
  - Pain [Unknown]
  - Agitation [Unknown]
  - Confusional state [Unknown]
